FAERS Safety Report 6444330-0 (Version None)
Quarter: 2009Q4

REPORT INFORMATION
  Report Type: 
  Country: None (occurrence: None)
  Receive Date: 20091116
  Receipt Date: 20091116
  Transmission Date: 20100525
  Serious: No
  Sender: FDA-Public Use
  Company Number: None

PATIENT
  Age: 57 Year
  Sex: Male
  Weight: 73.4827 kg

DRUGS (1)
  1. ZICAM NASAL SPRAY [Suspect]
     Indication: NASOPHARYNGITIS
     Dosage: ONE SQUIRT EACH NOSTRIL EVERY 4 HOURS NASAL TWO TO THREE TIMES A YEAR
     Route: 045

REACTIONS (2)
  - ANOSMIA [None]
  - HYPOSMIA [None]
